FAERS Safety Report 14844051 (Version 1)
Quarter: 2018Q2

REPORT INFORMATION
  Report Type: Report from Study
  Country: ES (occurrence: ES)
  Receive Date: 20180503
  Receipt Date: 20180503
  Transmission Date: 20180711
  Serious: Yes (Hospitalization)
  Sender: FDA-Public Use
  Company Number: ES-PFIZER INC-2018175352

PATIENT
  Age: 50 Year
  Sex: Female

DRUGS (15)
  1. IRINOTECAN HCL [Suspect]
     Active Substance: IRINOTECAN HYDROCHLORIDE
     Indication: COLORECTAL CANCER METASTATIC
     Dosage: 297 MG, CYCLIC
     Route: 041
     Dates: start: 20151117, end: 20151117
  2. LEUCOVORIN /00566701/ [Suspect]
     Active Substance: LEUCOVORIN
     Dosage: 640 MG, CYCLIC
     Route: 041
     Dates: start: 20160112, end: 20160112
  3. 5-FU /00098801/ [Suspect]
     Active Substance: FLUOROURACIL
     Indication: COLORECTAL CANCER METASTATIC
     Dosage: 660 MG, CYCLIC
     Route: 040
     Dates: start: 20151117, end: 20151117
  4. GRANISETRON [Concomitant]
     Active Substance: GRANISETRON
     Dosage: UNK
     Route: 065
     Dates: start: 20151117
  5. 5-FU /00098801/ [Suspect]
     Active Substance: FLUOROURACIL
     Dosage: 1980 MG, CYCLIC
     Route: 041
     Dates: start: 20151117, end: 20151117
  6. LOPERAMIDE [Concomitant]
     Active Substance: LOPERAMIDE
     Dosage: UNK
     Route: 065
     Dates: start: 20151117
  7. 5-FU /00098801/ [Suspect]
     Active Substance: FLUOROURACIL
     Dosage: 1920 MG, CYCLIC
     Route: 041
     Dates: start: 20160112, end: 20160112
  8. OMEPRAZOLE. [Concomitant]
     Active Substance: OMEPRAZOLE
     Dosage: UNK
     Route: 065
     Dates: start: 20151117
  9. DOMPERIDONE [Concomitant]
     Active Substance: DOMPERIDONE
     Dosage: 1
     Route: 065
     Dates: start: 20151117
  10. IRINOTECAN HCL [Suspect]
     Active Substance: IRINOTECAN HYDROCHLORIDE
     Dosage: 288 MG, CYCLIC
     Route: 041
     Dates: start: 20160112, end: 20160112
  11. 5-FU /00098801/ [Suspect]
     Active Substance: FLUOROURACIL
     Dosage: 640 MG, CYCLIC
     Route: 040
     Dates: start: 20160112, end: 20160112
  12. ZALTRAP [Suspect]
     Active Substance: ZIV-AFLIBERCEPT
     Indication: COLORECTAL CANCER METASTATIC
     Dosage: 220 MG, CYCLIC
     Route: 041
     Dates: start: 20160112, end: 20160112
  13. ZALTRAP [Suspect]
     Active Substance: ZIV-AFLIBERCEPT
     Dosage: 236 MG, CYCLIC
     Route: 041
     Dates: start: 20151117, end: 20151117
  14. LEUCOVORIN /00566701/ [Suspect]
     Active Substance: LEUCOVORIN
     Indication: COLORECTAL CANCER METASTATIC
     Dosage: 660 MG, CYCLIC
     Route: 041
     Dates: start: 20151117, end: 20151117
  15. G-CSF [Concomitant]
     Active Substance: GRANULOCYTE COLONY-STIMULATING FACTOR NOS
     Dosage: UNK
     Route: 065
     Dates: start: 20151117

REACTIONS (6)
  - Stomatitis [Recovered/Resolved]
  - Subcutaneous abscess [Recovered/Resolved]
  - Wound infection [Recovered/Resolved]
  - Alopecia [Recovered/Resolved]
  - Epistaxis [Recovered/Resolved]
  - Groin abscess [Recovered/Resolved]

NARRATIVE: CASE EVENT DATE: 20160112
